FAERS Safety Report 14657624 (Version 4)
Quarter: 2019Q1

REPORT INFORMATION
  Report Type: Report from Study
  Country: NO (occurrence: NO)
  Receive Date: 20180320
  Receipt Date: 20190129
  Transmission Date: 20190417
  Serious: Yes (Hospitalization, Other)
  Sender: FDA-Public Use
  Company Number: PHHY2017NO188708

PATIENT
  Age: 66 Year
  Sex: Male
  Weight: 83 kg

DRUGS (6)
  1. ENTRESTO [Suspect]
     Active Substance: SACUBITRIL\VALSARTAN
     Indication: CARDIAC FAILURE
     Dosage: 1 DF, BID
     Route: 048
     Dates: start: 20171112, end: 20171205
  2. EPLERENONE. [Concomitant]
     Active Substance: EPLERENONE
     Indication: ARTHRITIS
     Dosage: 25 MG, UNK
     Route: 065
     Dates: start: 20180115, end: 20180130
  3. KOLKICIN [Concomitant]
     Active Substance: COLCHICINE
     Indication: ARTHRITIS
     Dosage: 2 DF (1 MG), UNK
     Route: 065
     Dates: start: 20180115, end: 20180130
  4. TRIATEC [Concomitant]
     Indication: CARDIAC FAILURE
     Dosage: 2 DF (1.25 MG), UNK
     Route: 065
     Dates: start: 20180111, end: 20180114
  5. ENTRESTO [Suspect]
     Active Substance: SACUBITRIL\VALSARTAN
     Dosage: 1 DF, BID
     Route: 048
     Dates: start: 20180115, end: 20180130
  6. TRIATEC [Concomitant]
     Dosage: 1 DF, BID (5 MG IN THE MORNING AND 2.5 MG IN THE EVENING)
     Route: 065
     Dates: start: 20180131

REACTIONS (4)
  - Diarrhoea [Recovered/Resolved]
  - Urticaria [Recovered/Resolved]
  - Renal failure [Recovered/Resolved]
  - Blood creatinine increased [Recovering/Resolving]

NARRATIVE: CASE EVENT DATE: 20171205
